FAERS Safety Report 5329590-1 (Version None)
Quarter: 2007Q2

REPORT INFORMATION
  Report Type: 
  Country: None (occurrence: None)
  Receive Date: 20070227
  Receipt Date: 20060109
  Transmission Date: 20071010
  Serious: No
  Sender: FDA-Public Use
  Company Number: 421616

PATIENT
  Age: 40 Year
  Sex: Male

DRUGS (3)
  1. ACCUTANE [Suspect]
     Indication: DRUG USE FOR UNKNOWN INDICATION
     Dosage: ORAL
     Route: 048
     Dates: start: 20050815, end: 20050915
  2. SYNTHROID [Concomitant]
  3. GENERIC UNKNOWN (GENERIC UNKNOWN) [Concomitant]

REACTIONS (1)
  - TINNITUS [None]
